FAERS Safety Report 6966815-0 (Version None)
Quarter: 2010Q3

REPORT INFORMATION
  Report Type: 
  Country: None (occurrence: None)
  Receive Date: 20100906
  Receipt Date: 20100824
  Transmission Date: 20110219
  Serious: Yes (Other)
  Sender: FDA-Public Use
  Company Number: PHHY2010JP49653

PATIENT
  Age: 64 Year
  Sex: Male

DRUGS (2)
  1. ZOMETA [Suspect]
     Indication: HYPERCALCAEMIA OF MALIGNANCY
     Dosage: 4 MG PER ADMINISTRATION AT UNSPECIFIED INTERVALS
     Route: 041
     Dates: start: 20100726
  2. OXYCODONE HCL [Suspect]
     Route: 048

REACTIONS (4)
  - ALTERED STATE OF CONSCIOUSNESS [None]
  - FEELING ABNORMAL [None]
  - SPEECH DISORDER [None]
  - TERMINAL STATE [None]
